FAERS Safety Report 9688573 (Version 3)
Quarter: 2014Q1

REPORT INFORMATION
  Report Type: Spontaneous
  Country: US (occurrence: US)
  Receive Date: 20131114
  Receipt Date: 20140109
  Transmission Date: 20141002
  Serious: Yes (Other)
  Sender: FDA-Public Use
  Company Number: US-PFIZER INC-2013324092

PATIENT
  Age: 53 Year
  Sex: Male
  Weight: 102 kg

DRUGS (3)
  1. LIPITOR [Suspect]
     Indication: LOW DENSITY LIPOPROTEIN DECREASED
     Dosage: 80 MG, DAILY
     Route: 048
     Dates: start: 20130708, end: 201309
  2. LIPITOR [Suspect]
     Indication: STENT PLACEMENT
     Dosage: 40 MG, UNK
     Dates: start: 201309, end: 201310
  3. IBUPROFEN [Suspect]
     Indication: ARTHRALGIA
     Dosage: UNK, AS NEEDED
     Dates: start: 2013

REACTIONS (9)
  - Myalgia [Recovering/Resolving]
  - Muscular weakness [Recovering/Resolving]
  - Drug ineffective [Recovering/Resolving]
  - Pollakiuria [Recovering/Resolving]
  - Pain in extremity [Recovering/Resolving]
  - Fatigue [Recovering/Resolving]
  - Visual impairment [Recovering/Resolving]
  - Blood creatine phosphokinase increased [Recovering/Resolving]
  - Blood cholesterol increased [Recovering/Resolving]
